FAERS Safety Report 26020231 (Version 1)
Quarter: 2025Q4

REPORT INFORMATION
  Report Type: Spontaneous
  Country: US (occurrence: US)
  Receive Date: 20251110
  Receipt Date: 20251110
  Transmission Date: 20260117
  Serious: Yes (Life-Threatening, Hospitalization, Other)
  Sender: MACLEODS
  Company Number: US-MLMSERVICE-20251028-PI688385-00252-2

PATIENT

DRUGS (9)
  1. TRAMADOL [Suspect]
     Active Substance: TRAMADOL
     Indication: Product used for unknown indication
     Route: 065
  2. ACETAMINOPHEN\HYDROCODONE [Suspect]
     Active Substance: ACETAMINOPHEN\HYDROCODONE
     Indication: Product used for unknown indication
     Route: 065
  3. OXYCODONE [Suspect]
     Active Substance: OXYCODONE
     Indication: Product used for unknown indication
     Route: 065
  4. CARBOPLATIN [Suspect]
     Active Substance: CARBOPLATIN
     Indication: Ovarian cancer
     Route: 065
  5. CARBOPLATIN [Suspect]
     Active Substance: CARBOPLATIN
     Indication: Metastases to peritoneum
  6. PACLITAXEL [Suspect]
     Active Substance: PACLITAXEL
     Indication: Ovarian cancer
     Route: 065
  7. PACLITAXEL [Suspect]
     Active Substance: PACLITAXEL
     Indication: Metastases to peritoneum
  8. PREDNISONE [Suspect]
     Active Substance: PREDNISONE
     Indication: Ovarian cancer
     Dosage: 10-15 MG DAILY
     Route: 065
  9. PREDNISONE [Suspect]
     Active Substance: PREDNISONE
     Indication: Ovarian cancer
     Dosage: INCREASED FROM 10-15 MG TO 20 MG
     Route: 065

REACTIONS (6)
  - Emphysematous cystitis [Recovering/Resolving]
  - Klebsiella infection [Recovering/Resolving]
  - Upper gastrointestinal haemorrhage [Unknown]
  - Blood lactic acid increased [Unknown]
  - Urinary retention [Recovering/Resolving]
  - Urinary tract disorder [Recovering/Resolving]
